FAERS Safety Report 19680697 (Version 1)
Quarter: 2021Q3

REPORT INFORMATION
  Report Type: Spontaneous
  Country: US (occurrence: US)
  Receive Date: 20210810
  Receipt Date: 20210810
  Transmission Date: 20211014
  Serious: Yes (Life-Threatening, Hospitalization)
  Sender: FDA-Public Use
  Company Number: US-MYLANLABS-2021M1050248

PATIENT
  Age: 71 Year
  Sex: Male

DRUGS (9)
  1. EPINEPHRINE. [Suspect]
     Active Substance: EPINEPHRINE
     Indication: VASOPLEGIA SYNDROME
     Dosage: REQUIRED BOLUSES OF VASOPRESSOR BEFORE INITIATION OF CPB FOR A TOTAL OF 20 MG OF EPINEPHRINE
     Route: 040
  2. VASOPRESSIN. [Suspect]
     Active Substance: VASOPRESSIN
     Dosage: 0.08 INTERNATIONAL UNIT, QMINUTE
     Route: 042
  3. NOREPINEPHRINE. [Suspect]
     Active Substance: NOREPINEPHRINE
     Indication: VASOPLEGIA SYNDROME
     Dosage: 6 MICROGRAM, QMINUTE
     Route: 042
  4. VASOPRESSIN. [Suspect]
     Active Substance: VASOPRESSIN
     Dosage: 0.06 INTERNATIONAL UNIT, QMINUTE
     Route: 042
  5. EPINEPHRINE. [Suspect]
     Active Substance: EPINEPHRINE
     Dosage: 3 MICROGRAM, QMINUTE
     Route: 042
  6. VASOPRESSIN. [Suspect]
     Active Substance: VASOPRESSIN
     Indication: VASOPLEGIA SYNDROME
     Dosage: HE REQUIRED BOLUSES OF VASOPRESSOR BEFORE INITIATION OF CPB FOR A TOTAL OF 2 UNITS OF VASOPRESSIN
     Route: 042
  7. PHENYLEPHRINE [Suspect]
     Active Substance: PHENYLEPHRINE HYDROCHLORIDE
     Indication: VASOPLEGIA SYNDROME
     Dosage: HE REQUIRED BOLUSES OF VASOPRESSOR BEFORE INITIATION OF CPB FOR A TOTAL 200 MCG OF PHENYLEPHRINE
     Route: 042
  8. VASOPRESSIN. [Suspect]
     Active Substance: VASOPRESSIN
     Dosage: 0.04 INTERNATIONAL UNIT, QMINUTE
     Route: 042
  9. CALCIUM CHLORIDE. [Suspect]
     Active Substance: CALCIUM CHLORIDE
     Indication: VASOPLEGIA SYNDROME
     Dosage: UNK
     Route: 065

REACTIONS (1)
  - Drug ineffective [Unknown]
